FAERS Safety Report 17169012 (Version 2)
Quarter: 2020Q1

REPORT INFORMATION
  Report Type: Report from Study
  Country: DE (occurrence: DE)
  Receive Date: 20191218
  Receipt Date: 20200313
  Transmission Date: 20200409
  Serious: Yes (Hospitalization)
  Sender: FDA-Public Use
  Company Number: DE-ROCHE-2495344

PATIENT
  Age: 65 Year
  Sex: Female
  Weight: 54 kg

DRUGS (29)
  1. AERIUS (DESLORATADINE) [Concomitant]
     Active Substance: DESLORATADINE
     Indication: PROPHYLAXIS
     Route: 048
     Dates: start: 20190327, end: 20190329
  2. L-THYROXIN [LEVOTHYROXINE] [Concomitant]
     Active Substance: LEVOTHYROXINE SODIUM
     Indication: HYPOTHYROIDISM
     Route: 048
  3. VENLAFAXIN [Concomitant]
     Active Substance: VENLAFAXINE HYDROCHLORIDE
     Indication: RESTLESSNESS
     Route: 048
     Dates: start: 20160720
  4. METAMIZOLE [Concomitant]
     Active Substance: METAMIZOLE
     Route: 048
     Dates: start: 20190121
  5. PREDNISOLON [PREDNISOLONE] [Concomitant]
     Active Substance: PREDNISOLONE
     Indication: PROPHYLAXIS
     Route: 042
     Dates: start: 20180924, end: 20180924
  6. AMBROXOL [Concomitant]
     Active Substance: AMBROXOL
     Indication: CHRONIC OBSTRUCTIVE PULMONARY DISEASE
     Route: 048
     Dates: start: 20190126, end: 20190202
  7. AERIUS (DESLORATADINE) [Concomitant]
     Active Substance: DESLORATADINE
     Indication: PROPHYLAXIS
     Route: 048
     Dates: start: 20180909, end: 20180911
  8. VENLAFAXIN [Concomitant]
     Active Substance: VENLAFAXINE HYDROCHLORIDE
     Route: 048
     Dates: start: 20160720
  9. DEKRISTOL [Concomitant]
     Active Substance: CHOLECALCIFEROL
     Indication: VITAMIN D DEFICIENCY
     Route: 048
     Dates: start: 20180806
  10. PROCORALAN [Concomitant]
     Active Substance: IVABRADINE
     Indication: ANGINA PECTORIS
     Route: 048
  11. MONO EMBOLEX [Concomitant]
     Active Substance: CERTOPARIN SODIUM
     Indication: THROMBOSIS PROPHYLAXIS
     Route: 058
     Dates: start: 20190124, end: 20190130
  12. RESTEX [Concomitant]
     Active Substance: BENSERAZIDE\LEVODOPA
     Indication: RESTLESS LEGS SYNDROME
     Route: 048
     Dates: start: 20170502
  13. REQUIP [Concomitant]
     Active Substance: ROPINIROLE HYDROCHLORIDE
     Route: 048
  14. TILIDINE [Concomitant]
     Active Substance: TILIDINE
     Indication: PAIN
     Route: 048
  15. OCRELIZUMAB. [Suspect]
     Active Substance: OCRELIZUMAB
     Indication: MULTIPLE SCLEROSIS
     Route: 042
     Dates: start: 20180910, end: 20180924
  16. RANITIDIN [Concomitant]
     Active Substance: RANITIDINE HYDROCHLORIDE
     Indication: PROPHYLAXIS
     Route: 048
     Dates: start: 20190327, end: 20190329
  17. SPIRIVA [Concomitant]
     Active Substance: TIOTROPIUM BROMIDE MONOHYDRATE
     Indication: CHRONIC OBSTRUCTIVE PULMONARY DISEASE
     Route: 048
  18. PREDNISOLON [PREDNISOLONE] [Concomitant]
     Active Substance: PREDNISOLONE
     Indication: PROPHYLAXIS
     Route: 042
     Dates: start: 20180910, end: 20180910
  19. RANITIDIN [Concomitant]
     Active Substance: RANITIDINE HYDROCHLORIDE
     Indication: PROPHYLAXIS
     Route: 048
     Dates: start: 20180909, end: 20180911
  20. BACLOFEN. [Concomitant]
     Active Substance: BACLOFEN
     Indication: MUSCLE SPASTICITY
     Route: 048
     Dates: start: 20121004
  21. TILIDINE [Concomitant]
     Active Substance: TILIDINE
     Route: 048
  22. INTERFERON BETA-1A [Concomitant]
     Active Substance: INTERFERON BETA-1A
     Route: 065
     Dates: start: 2007, end: 2008
  23. RANITIDIN [Concomitant]
     Active Substance: RANITIDINE HYDROCHLORIDE
     Indication: PROPHYLAXIS
     Route: 048
     Dates: start: 20180923, end: 20180925
  24. PREDNISOLON [PREDNISOLONE] [Concomitant]
     Active Substance: PREDNISOLONE
     Indication: PROPHYLAXIS
     Route: 042
     Dates: start: 20190328, end: 20190328
  25. RAMIPRIL. [Concomitant]
     Active Substance: RAMIPRIL
     Indication: HYPERTENSION
     Route: 048
  26. AERIUS (DESLORATADINE) [Concomitant]
     Active Substance: DESLORATADINE
     Indication: PROPHYLAXIS
     Route: 048
     Dates: start: 20180923, end: 20180925
  27. SYMBICORT [Concomitant]
     Active Substance: BUDESONIDE\FORMOTEROL FUMARATE DIHYDRATE
     Indication: CHRONIC OBSTRUCTIVE PULMONARY DISEASE
     Route: 055
  28. TAVOR (LORAZEPAM) [Concomitant]
     Active Substance: LORAZEPAM
     Indication: DYSAESTHESIA
     Route: 048
  29. MITOXANTRON [MITOXANTRONE] [Concomitant]
     Active Substance: MITOXANTRONE HYDROCHLORIDE
     Route: 065
     Dates: start: 2009, end: 201112

REACTIONS (2)
  - Lumbar spinal stenosis [Unknown]
  - Intervertebral disc protrusion [Unknown]

NARRATIVE: CASE EVENT DATE: 201901
